FAERS Safety Report 11869250 (Version 1)
Quarter: 2015Q4

REPORT INFORMATION
  Report Type: Spontaneous
  Country: CH (occurrence: CH)
  Receive Date: 20151226
  Receipt Date: 20151226
  Transmission Date: 20160305
  Serious: Yes (Life-Threatening)
  Sender: FDA-Public Use
  Company Number: CH-IGI LABORATORIES, INC.-1045892

PATIENT
  Age: 44 Year
  Sex: Female

DRUGS (7)
  1. ZINACEF [Suspect]
     Active Substance: CEFUROXIME SODIUM
     Indication: LIMB OPERATION
     Route: 041
     Dates: start: 20150715, end: 20150715
  2. FENTANYL. [Suspect]
     Active Substance: FENTANYL
     Route: 041
     Dates: start: 20150715, end: 20150715
  3. DORMICUM [Suspect]
     Active Substance: MIDAZOLAM\MIDAZOLAM HYDROCHLORIDE
     Route: 040
     Dates: start: 20150715, end: 20150715
  4. NAROPIN [Suspect]
     Active Substance: ROPIVACAINE HYDROCHLORIDE
     Dates: start: 20150715, end: 20150715
  5. MEPIVACAINE [Suspect]
     Active Substance: MEPIVACAINE\MEPIVACAINE HYDROCHLORIDE
     Dates: start: 20150715, end: 20150715
  6. FRAXIPARINE [Concomitant]
     Active Substance: NADROPARIN CALCIUM
     Route: 058
  7. CHLORHEXIDINE GLUCONATE. [Suspect]
     Active Substance: CHLORHEXIDINE GLUCONATE
     Route: 061

REACTIONS (4)
  - Dyspnoea [Not Recovered/Not Resolved]
  - Pruritus [Recovered/Resolved]
  - Malaise [Recovered/Resolved]
  - Chest discomfort [Recovered/Resolved]

NARRATIVE: CASE EVENT DATE: 20150715
